FAERS Safety Report 7464988-7 (Version None)
Quarter: 2011Q2

REPORT INFORMATION
  Report Type: 
  Country: None (occurrence: None)
  Receive Date: 20110505
  Receipt Date: 20110505
  Transmission Date: 20111010
  Serious: Yes (Other)
  Sender: FDA-Public Use
  Company Number: None

PATIENT
  Sex: Male
  Weight: 75 kg

DRUGS (13)
  1. METOLAZONE [Concomitant]
  2. LISINOPRIL [Concomitant]
  3. OMEPRAZOLE [Concomitant]
  4. ASPIRIN [Concomitant]
  5. POLYETHYLENE GLYCOL [Concomitant]
  6. SIMVASTATIN [Concomitant]
  7. JUVEN [Concomitant]
  8. FERROUS SULFATE TAB [Concomitant]
  9. POTASSIUM CHLORIDE [Concomitant]
  10. OXYCODONE/ACETAMINOPHEN [Concomitant]
  11. ALBUMINAR-25 [Suspect]
     Indication: HYPOALBUMINAEMIA
     Dosage: 25GM OVER 30 MINUTES IV; 25GM PARTIALLY INFUSED IV
     Route: 042
     Dates: start: 20110315, end: 20110315
  12. ZOLPIDEM [Concomitant]
  13. ENOXAPARIN [Concomitant]

REACTIONS (5)
  - INFUSION RELATED REACTION [None]
  - EYE SWELLING [None]
  - SWELLING FACE [None]
  - LIP SWELLING [None]
  - URTICARIA [None]
